FAERS Safety Report 8105547 (Version 3)
Quarter: 2013Q1

REPORT INFORMATION
  Report Type: Spontaneous
  Country: US (occurrence: US)
  Receive Date: 20110825
  Receipt Date: 20130208
  Transmission Date: 20140127
  Serious: Yes (Death, Hospitalization)
  Sender: FDA-Public Use
  Company Number: US-BAYER-2011-076849

PATIENT
  Age: 40 Year
  Sex: Female
  Weight: 59 kg

DRUGS (14)
  1. YASMIN [Suspect]
     Indication: CONTRACEPTION
     Dosage: UNK
     Dates: start: 20070626, end: 20081015
  2. OCELLA [Suspect]
     Indication: CONTRACEPTION
     Dosage: UNK
     Dates: start: 20081115, end: 20091108
  3. AMITRIPTYLINE HCL [Concomitant]
  4. ATIVAN [Concomitant]
     Indication: ANXIETY
     Dosage: 0.5 MG, QID PRN
     Route: 048
     Dates: start: 20091106
  5. ATIVAN [Concomitant]
     Indication: HYPERVENTILATION
  6. RELPAX [Concomitant]
     Dosage: UNK
     Route: 048
     Dates: start: 20090112, end: 20091013
  7. NADOLOL [Concomitant]
     Dosage: 40 MG, QD
     Route: 048
  8. SYMBICORT [Concomitant]
     Indication: WHEEZING
  9. TOPROL XL [Concomitant]
     Dosage: 20 MG, QD
     Route: 048
     Dates: start: 20091106
  10. BICARBONAT [Concomitant]
  11. BYSTOLIC [Concomitant]
     Dosage: 5 MG, DAILY
     Route: 048
  12. OTHER ANALGESICS AND ANTIPYRETICS [Concomitant]
     Route: 048
  13. CORGARD [Concomitant]
     Dosage: 40 MG, DAILY
     Route: 048
  14. ELAVIL [Concomitant]

REACTIONS (6)
  - Pulmonary embolism [Fatal]
  - Syncope [Fatal]
  - Dyspnoea [Fatal]
  - Wheezing [Fatal]
  - Dizziness [Fatal]
  - Pain [Fatal]
